FAERS Safety Report 6862673-3 (Version None)
Quarter: 2010Q3

REPORT INFORMATION
  Report Type: 
  Country: None (occurrence: None)
  Receive Date: 20100716
  Receipt Date: 20100705
  Transmission Date: 20110219
  Serious: Yes (Other)
  Sender: FDA-Public Use
  Company Number: 1000013209

PATIENT
  Age: 29 Year
  Sex: Female
  Weight: 80 kg

DRUGS (2)
  1. ESCITALOPRAM OXALATE [Suspect]
     Indication: DEPRESSION
     Dosage: 10 MG (10 MG, 1 IN 1 D), ORAL
     Route: 048
     Dates: start: 20100331, end: 20100419
  2. RESTEX (TABLETS) [Concomitant]

REACTIONS (3)
  - BLOOD ANTIDIURETIC HORMONE DECREASED [None]
  - POLYDIPSIA [None]
  - POLYURIA [None]
